FAERS Safety Report 15508987 (Version 4)
Quarter: 2020Q4

REPORT INFORMATION
  Report Type: Report from Study
  Country: JP (occurrence: JP)
  Receive Date: 20181016
  Receipt Date: 20201113
  Transmission Date: 20210113
  Serious: Yes (Hospitalization, Other)
  Sender: FDA-Public Use
  Company Number: JP-GLAXOSMITHKLINE-JP2018JPN182659

PATIENT
  Age: 68 Year
  Sex: Female
  Weight: 39 kg

DRUGS (30)
  1. MEPOLIZUMAB [Suspect]
     Active Substance: MEPOLIZUMAB
     Dosage: 300 MG
     Route: 058
     Dates: start: 20191122, end: 20191122
  2. MEPOLIZUMAB [Suspect]
     Active Substance: MEPOLIZUMAB
     Dosage: 300 MG
     Route: 058
     Dates: start: 20200214, end: 20200214
  3. MEPOLIZUMAB [Suspect]
     Active Substance: MEPOLIZUMAB
     Dosage: 300 MG
     Route: 058
     Dates: start: 20190927, end: 20190927
  4. MEPOLIZUMAB [Suspect]
     Active Substance: MEPOLIZUMAB
     Dosage: 300 MG
     Route: 058
     Dates: start: 20191025, end: 20191025
  5. RELVAR ELLIPTA [Suspect]
     Active Substance: FLUTICASONE FUROATE\VILANTEROL TRIFENATATE
     Indication: ASTHMA
     Dosage: 200 ?G, 1D
     Route: 055
  6. MEPOLIZUMAB [Suspect]
     Active Substance: MEPOLIZUMAB
     Dosage: 200 MG
     Route: 058
     Dates: start: 20190208, end: 20190208
  7. MEPOLIZUMAB [Suspect]
     Active Substance: MEPOLIZUMAB
     Dosage: 200 MG
     Route: 058
     Dates: start: 20190308, end: 20190308
  8. MEPOLIZUMAB [Suspect]
     Active Substance: MEPOLIZUMAB
     Dosage: 200 MG
     Route: 058
     Dates: start: 20190606, end: 20190606
  9. MEPOLIZUMAB [Suspect]
     Active Substance: MEPOLIZUMAB
     Dosage: 300 MG
     Route: 058
     Dates: start: 20190705, end: 20190705
  10. MEPOLIZUMAB [Suspect]
     Active Substance: MEPOLIZUMAB
     Dosage: 300 MG
     Route: 058
     Dates: start: 20190830, end: 20190830
  11. MEPOLIZUMAB [Suspect]
     Active Substance: MEPOLIZUMAB
     Dosage: 300 MG
     Route: 058
     Dates: start: 20200117, end: 20200117
  12. MEPOLIZUMAB [Suspect]
     Active Substance: MEPOLIZUMAB
     Dosage: 300 MG
     Route: 058
     Dates: start: 20200605, end: 20200605
  13. ALLEGRA [Concomitant]
     Active Substance: FEXOFENADINE HYDROCHLORIDE
     Indication: EOSINOPHILIC GRANULOMATOSIS WITH POLYANGIITIS
     Dosage: UNK
  14. BAKTAR [Concomitant]
     Active Substance: SULFAMETHOXAZOLE\TRIMETHOPRIM
     Indication: PROPHYLAXIS
     Dosage: UNK
  15. MEPOLIZUMAB [Suspect]
     Active Substance: MEPOLIZUMAB
     Dosage: 200 MG
     Route: 058
     Dates: start: 20180907, end: 20180907
  16. MEPOLIZUMAB [Suspect]
     Active Substance: MEPOLIZUMAB
     Dosage: 200 MG
     Route: 058
     Dates: start: 20181214, end: 20181214
  17. PREDNISOLONE. [Suspect]
     Active Substance: PREDNISOLONE
     Indication: EOSINOPHILIC GRANULOMATOSIS WITH POLYANGIITIS
     Dosage: 2 MG, 1D
     Route: 048
  18. MEPOLIZUMAB [Suspect]
     Active Substance: MEPOLIZUMAB
     Indication: EOSINOPHILIC GRANULOMATOSIS WITH POLYANGIITIS
     Dosage: 100 MG
     Route: 058
  19. MEPOLIZUMAB [Suspect]
     Active Substance: MEPOLIZUMAB
     Dosage: 300 MG
     Route: 058
     Dates: start: 20200410, end: 20200410
  20. MEPOLIZUMAB [Suspect]
     Active Substance: MEPOLIZUMAB
     Indication: ASTHMA
     Dosage: 200 MG
     Route: 058
     Dates: start: 20180810, end: 20180810
  21. MEPOLIZUMAB [Suspect]
     Active Substance: MEPOLIZUMAB
     Dosage: 300 MG
     Route: 058
     Dates: start: 20190802, end: 20190812
  22. MEPOLIZUMAB [Suspect]
     Active Substance: MEPOLIZUMAB
     Dosage: 300 MG
     Route: 058
     Dates: start: 20200508, end: 20200508
  23. MEPOLIZUMAB [Suspect]
     Active Substance: MEPOLIZUMAB
     Dosage: 200 MG
     Route: 058
     Dates: start: 20181116, end: 20181116
  24. MEPOLIZUMAB [Suspect]
     Active Substance: MEPOLIZUMAB
     Dosage: 200 MG
     Route: 058
     Dates: start: 20190405, end: 20190405
  25. MEPOLIZUMAB [Suspect]
     Active Substance: MEPOLIZUMAB
     Dosage: 200 MG
     Route: 058
     Dates: start: 20190510, end: 20190510
  26. PROGRAF [Suspect]
     Active Substance: TACROLIMUS
     Indication: EOSINOPHILIC GRANULOMATOSIS WITH POLYANGIITIS
     Dosage: 2 MG, 1D
     Route: 048
  27. RELVAR ELLIPTA [Suspect]
     Active Substance: FLUTICASONE FUROATE\VILANTEROL TRIFENATATE
     Indication: EOSINOPHILIC GRANULOMATOSIS WITH POLYANGIITIS
  28. MEPOLIZUMAB [Suspect]
     Active Substance: MEPOLIZUMAB
     Dosage: 200 MG
     Route: 058
     Dates: start: 20181026
  29. MEPOLIZUMAB [Suspect]
     Active Substance: MEPOLIZUMAB
     Dosage: 200 MG
     Route: 058
     Dates: start: 20190111, end: 20190111
  30. MEPOLIZUMAB [Suspect]
     Active Substance: MEPOLIZUMAB
     Dosage: 300 MG
     Route: 058
     Dates: start: 20200313, end: 20200313

REACTIONS (6)
  - Pneumonia pneumococcal [Recovered/Resolved]
  - Pneumonia pneumococcal [Recovered/Resolved]
  - Off label use [Unknown]
  - Inappropriate schedule of product administration [Unknown]
  - Prescribed underdose [Unknown]
  - Product use in unapproved indication [Unknown]

NARRATIVE: CASE EVENT DATE: 20180810
